FAERS Safety Report 23917638 (Version 3)
Quarter: 2024Q4

REPORT INFORMATION
  Report Type: Report from Study
  Country: US (occurrence: US)
  Receive Date: 20240530
  Receipt Date: 20241204
  Transmission Date: 20250115
  Serious: Yes (Death, Hospitalization, Other)
  Sender: ABBVIE
  Company Number: US-ABBVIE-5779248

PATIENT
  Age: 75 Year
  Sex: Female

DRUGS (1)
  1. CREON [Suspect]
     Active Substance: PANCRELIPASE AMYLASE\PANCRELIPASE LIPASE\PANCRELIPASE PROTEASE
     Indication: Diarrhoea
     Dosage: FORM STRENGTH: 36000 UNIT
     Route: 048

REACTIONS (3)
  - Death [Fatal]
  - Rehabilitation therapy [Unknown]
  - Constipation [Unknown]

NARRATIVE: CASE EVENT DATE: 20240520
